FAERS Safety Report 5997907-0 (Version None)
Quarter: 2008Q4

REPORT INFORMATION
  Report Type: 
  Country: None (occurrence: None)
  Receive Date: 20081211
  Receipt Date: 20081202
  Transmission Date: 20090506
  Serious: Yes (Life-Threatening)
  Sender: FDA-Public Use
  Company Number: 08H-163-0315278-00

PATIENT
  Age: 42 Year
  Sex: Male
  Weight: 70 kg

DRUGS (4)
  1. EPINEPHRINE [Suspect]
     Indication: ARRHYTHMIA
     Dosage: 1 MG, ONCE, INTRAVENOUS
     Route: 042
     Dates: start: 20081107, end: 20081107
  2. ISOPROTERENOL (ISOPRENALINE HYDROCHLORIDE) [Concomitant]
  3. FENTANYL-100 [Concomitant]
  4. VERSED [Concomitant]

REACTIONS (9)
  - BLOOD PRESSURE DECREASED [None]
  - CHEST PAIN [None]
  - DRUG PRESCRIBING ERROR [None]
  - ELECTROCARDIOGRAM CHANGE [None]
  - HEADACHE [None]
  - INCORRECT DOSE ADMINISTERED [None]
  - NAUSEA [None]
  - VENTRICULAR ARRHYTHMIA [None]
  - VOMITING [None]
